FAERS Safety Report 25417465 (Version 2)
Quarter: 2025Q3

REPORT INFORMATION
  Report Type: Spontaneous
  Country: EU (occurrence: EU)
  Receive Date: 20250610
  Receipt Date: 20250809
  Transmission Date: 20251021
  Serious: Yes (Other)
  Sender: ALEXION PHARMACEUTICALS
  Company Number: None

PATIENT
  Age: 72 Year
  Sex: Male

DRUGS (8)
  1. XIGDUO XR [Interacting]
     Active Substance: DAPAGLIFLOZIN PROPANEDIOL\METFORMIN HYDROCHLORIDE
     Indication: Type 2 diabetes mellitus
  2. TESTOSTERONE [Interacting]
     Active Substance: TESTOSTERONE
     Indication: Hypogonadism male
     Dosage: 1 DOSAGE FORM, QMONTH
     Dates: start: 2015, end: 202410
  3. TESTOSTERONE [Interacting]
     Active Substance: TESTOSTERONE
     Indication: Hypogonadism male
  4. LERCANIDIPINE [Concomitant]
     Active Substance: LERCANIDIPINE
     Dosage: 1 DOSAGE FORM, QD
  5. ATORVASTATIN [Concomitant]
     Active Substance: ATORVASTATIN
     Dosage: 1 DOSAGE FORM, QD
  6. KARDEGIC [Concomitant]
     Active Substance: ASPIRIN DL-LYSINE
     Dosage: 1 DOSAGE FORM, QD
  7. BUDESONIDE [Concomitant]
     Active Substance: BUDESONIDE
     Dosage: 1 DOSAGE FORM, QD
  8. TRULICITY [Concomitant]
     Active Substance: DULAGLUTIDE
     Dosage: 1 DOSAGE FORM, QW

REACTIONS (3)
  - Drug interaction [Recovered/Resolved]
  - Polycythaemia [Recovered/Resolved]
  - Product availability issue [Recovered/Resolved]

NARRATIVE: CASE EVENT DATE: 20230101
